FAERS Safety Report 10142651 (Version 3)
Quarter: 2014Q3

REPORT INFORMATION
  Report Type: Spontaneous
  Country: GB (occurrence: None)
  Receive Date: 20140425
  Receipt Date: 20140804
  Transmission Date: 20150326
  Serious: Yes (Other)
  Sender: FDA-Public Use
  Company Number: AUR-APL-2014-04864

PATIENT
  Age: 6 Decade

DRUGS (2)
  1. VANCOMYCIN HYDROCHLORIDE. [Suspect]
     Active Substance: VANCOMYCIN HYDROCHLORIDE
     Indication: LUNG ABSCESS
     Dosage: 3 GM (1.5 GM,2 IN 1 D)
     Route: 042
  2. PIPERACILLIN AND TAZOBACTAM [Suspect]
     Active Substance: PIPERACILLIN SODIUM\TAZOBACTAM SODIUM
     Indication: LUNG ABSCESS
     Dosage: 13.5 GM (4.5 GM,3 IN 1 D)
     Route: 042

REACTIONS (7)
  - Pleural effusion [None]
  - Malignant neoplasm progression [None]
  - Hypoxia [None]
  - Renal impairment [None]
  - Flank pain [None]
  - Lung abscess [None]
  - Non-small cell lung cancer metastatic [None]
